FAERS Safety Report 5518144-X (Version None)
Quarter: 2007Q4

REPORT INFORMATION
  Report Type: 
  Country: None (occurrence: None)
  Receive Date: 20071113
  Receipt Date: 20071102
  Transmission Date: 20080405
  Serious: Yes (Hospitalization)
  Sender: FDA-Public Use
  Company Number: 163840USA

PATIENT
  Age: 63 Year
  Sex: Female

DRUGS (5)
  1. PIMOZIDE             (PIMOZIDE) [Suspect]
     Dosage: ORAL
     Route: 048
  2. ENALAPRIL [Suspect]
  3. METPORMIN [Suspect]
  4. HYDROCHLOROTHIAZIDE [Concomitant]
  5. BROMOPRIDE [Suspect]

REACTIONS (2)
  - CONFUSIONAL STATE [None]
  - MULTIPLE DRUG OVERDOSE [None]
